FAERS Safety Report 8925516 (Version 2)
Quarter: 2012Q4

REPORT INFORMATION
  Report Type: 
  Country: US (occurrence: US)
  Receive Date: 20121126
  Receipt Date: 20121127
  Transmission Date: 20130627
  Serious: Yes (Hospitalization, Other)
  Sender: FDA-Public Use
  Company Number: US-ABBOTT-12P-163-1009524-00

PATIENT
  Age: 59 None
  Sex: Female
  Weight: 61.29 kg

DRUGS (9)
  1. VICODIN ES [Suspect]
     Indication: PAIN
  2. VICODIN ES [Suspect]
     Dates: start: 2002, end: 201111
  3. VICODIN ES [Suspect]
     Dates: start: 2012, end: 2012
  4. HYDROCODONE [Suspect]
     Indication: PAIN
     Dates: start: 201111
  5. SOMA [Concomitant]
     Indication: PRODUCT USED FOR UNKNOWN INDICATION
  6. NEURONTIN [Concomitant]
     Indication: PRODUCT USED FOR UNKNOWN INDICATION
  7. SYNTHROID [Concomitant]
     Indication: PRODUCT USED FOR UNKNOWN INDICATION
     Dosage: 75 mcg daily
  8. XANAX [Concomitant]
     Indication: PRODUCT USED FOR UNKNOWN INDICATION
  9. ALPRAZOLAM [Concomitant]
     Indication: PRODUCT USED FOR UNKNOWN INDICATION

REACTIONS (21)
  - Cataract [Recovered/Resolved]
  - Spinal fracture [Unknown]
  - Disability [Not Recovered/Not Resolved]
  - Foot fracture [Unknown]
  - Malaise [Unknown]
  - Nausea [Unknown]
  - Dizziness [Unknown]
  - Heart rate increased [Unknown]
  - Hypertension [Unknown]
  - Unevaluable event [Not Recovered/Not Resolved]
  - Weight decreased [Not Recovered/Not Resolved]
  - Erythema [Unknown]
  - Skin exfoliation [Unknown]
  - Hypersensitivity [Unknown]
  - Attention deficit/hyperactivity disorder [Unknown]
  - Hallucination, auditory [Not Recovered/Not Resolved]
  - Pain [Recovering/Resolving]
  - Exostosis [Unknown]
  - Pain in extremity [Unknown]
  - Gait disturbance [Unknown]
  - Sciatica [Unknown]
